FAERS Safety Report 12560451 (Version 1)
Quarter: 2016Q3

REPORT INFORMATION
  Report Type: Spontaneous
  Country: US (occurrence: US)
  Receive Date: 20160715
  Receipt Date: 20160715
  Transmission Date: 20161109
  Serious: No
  Sender: FDA-Public Use
  Company Number: US-JNJFOC-20160603612

PATIENT
  Sex: Female
  Weight: 52.16 kg

DRUGS (4)
  1. WOMENS ROGAINE [Suspect]
     Active Substance: MINOXIDIL
     Route: 061
  2. WOMENS ROGAINE [Suspect]
     Active Substance: MINOXIDIL
     Indication: PRODUCT USED FOR UNKNOWN INDICATION
     Dosage: AS DIRECTED, MAYBE A LITTLE MORE 1 OR 2 TIMES A DAY
     Route: 061
  3. BALZIVA [Concomitant]
     Active Substance: ETHINYL ESTRADIOL\NORETHINDRONE
     Indication: PRODUCT USED FOR UNKNOWN INDICATION
     Route: 065
  4. CALCIUM [Concomitant]
     Active Substance: CALCIUM
     Indication: PRODUCT USED FOR UNKNOWN INDICATION
     Route: 065

REACTIONS (7)
  - Erythema [Recovered/Resolved]
  - Product expiration date issue [Unknown]
  - Dermatitis [Recovered/Resolved]
  - Overdose [Recovered/Resolved]
  - Product formulation issue [Unknown]
  - Burning sensation [Recovered/Resolved]
  - Inappropriate schedule of drug administration [Recovered/Resolved]
